FAERS Safety Report 10951071 (Version 1)
Quarter: 2015Q1

REPORT INFORMATION
  Report Type: Spontaneous
  Country: US (occurrence: None)
  Receive Date: 20150226
  Receipt Date: 20150226
  Transmission Date: 20150721
  Serious: Yes (Other)
  Sender: FDA-Public Use
  Company Number: PHEH2014US025607

PATIENT
  Age: 68 Year
  Sex: Female

DRUGS (2)
  1. ADVIL/IBUPROFEN (IBUPROFEN) [Concomitant]
     Dates: start: 20141026, end: 20141030
  2. TEGRETOL [Suspect]
     Active Substance: CARBAMAZEPINE
     Indication: SEIZURE
     Dosage: 1 DF, TID

REACTIONS (4)
  - Seizure [None]
  - Dyspepsia [None]
  - Muscle rigidity [None]
  - Inflammation [None]
